FAERS Safety Report 4299108-3 (Version None)
Quarter: 2004Q1

REPORT INFORMATION
  Report Type: 
  Country: None (occurrence: None)
  Receive Date: 20040217
  Receipt Date: 20040202
  Transmission Date: 20041129
  Serious: Yes (Life-Threatening, Hospitalization)
  Sender: FDA-Public Use
  Company Number: 04H-161-0249244-00

PATIENT
  Age: 47 Year
  Sex: Female
  Weight: 85 kg

DRUGS (1)
  1. MORPHINE SUL INJ [Suspect]
     Indication: PAIN
     Dosage: 510 MG, BOLUS, INTRATHECAL
     Route: 037

REACTIONS (16)
  - ACCIDENTAL EXPOSURE [None]
  - ACCIDENTAL OVERDOSE [None]
  - AMNESIA [None]
  - BRAIN OEDEMA [None]
  - DIPLOPIA [None]
  - DISORIENTATION [None]
  - FEELING ABNORMAL [None]
  - FLUSHING [None]
  - HEADACHE [None]
  - HYPERTENSION [None]
  - HYPERVENTILATION [None]
  - HYPOTENSION [None]
  - MIOSIS [None]
  - PARAPARESIS [None]
  - SOMNOLENCE [None]
  - STATUS EPILEPTICUS [None]
